FAERS Safety Report 4951398-7 (Version None)
Quarter: 2006Q1

REPORT INFORMATION
  Report Type: 
  Country: None (occurrence: None)
  Receive Date: 20060323
  Receipt Date: 20060309
  Transmission Date: 20060701
  Serious: Yes (Death, Hospitalization)
  Sender: FDA-Public Use
  Company Number: JP-JNJFOC-20051205338

PATIENT
  Sex: Male

DRUGS (5)
  1. DUROTEP [Suspect]
     Route: 062
  2. DUROTEP [Suspect]
     Route: 062
  3. DUROTEP [Suspect]
     Indication: CANCER PAIN
     Route: 062
  4. OXYCODONE HCL [Concomitant]
     Indication: CANCER PAIN
     Route: 048
  5. MORPHINE [Concomitant]
     Indication: CANCER PAIN
     Route: 048

REACTIONS (4)
  - DEPRESSED LEVEL OF CONSCIOUSNESS [None]
  - DYSPNOEA [None]
  - NEOPLASM MALIGNANT [None]
  - OXYGEN SATURATION DECREASED [None]
